FAERS Safety Report 6087681-4 (Version None)
Quarter: 2009Q1

REPORT INFORMATION
  Report Type: 
  Country: None (occurrence: None)
  Receive Date: 20090223
  Receipt Date: 20090210
  Transmission Date: 20090719
  Serious: Yes (Death)
  Sender: FDA-Public Use
  Company Number: PK-ROCHE-614202

PATIENT
  Sex: Female

DRUGS (4)
  1. RIBAVIRIN [Suspect]
     Route: 048
     Dates: start: 20081014
  2. PEG-INTERFERON ALFA 2B [Suspect]
     Route: 058
     Dates: start: 20081014
  3. ELTROMBOPAG [Suspect]
     Indication: THROMBOCYTOPENIA
     Route: 048
     Dates: start: 20080919, end: 20081014
  4. BLINDED ELTROMBOPAG [Suspect]
     Indication: THROMBOCYTOPENIA
     Route: 048
     Dates: start: 20081015

REACTIONS (1)
  - UPPER GASTROINTESTINAL HAEMORRHAGE [None]
